FAERS Safety Report 17872860 (Version 1)
Quarter: 2020Q2

REPORT INFORMATION
  Report Type: Spontaneous
  Country: US (occurrence: US)
  Receive Date: 20200608
  Receipt Date: 20200608
  Transmission Date: 20200714
  Serious: No
  Sender: FDA-Public Use
  Company Number: US-ACTELION-A-US2020-205625

PATIENT
  Age: 64 Year
  Sex: Female

DRUGS (1)
  1. UPTRAVI [Suspect]
     Active Substance: SELEXIPAG
     Indication: PRODUCT USED FOR UNKNOWN INDICATION
     Dosage: 1400 MCG
     Route: 048

REACTIONS (6)
  - Headache [Unknown]
  - Feeling hot [Unknown]
  - Nausea [Unknown]
  - Myalgia [Unknown]
  - Influenza like illness [Unknown]
  - Chills [Unknown]
